FAERS Safety Report 13734765 (Version 1)
Quarter: 2017Q3

REPORT INFORMATION
  Report Type: Spontaneous
  Country: US (occurrence: US)
  Receive Date: 20170710
  Receipt Date: 20170710
  Transmission Date: 20171127
  Serious: Yes (Other)
  Sender: FDA-Public Use
  Company Number: US-TORRENT-00003163

PATIENT
  Age: 17 Year
  Sex: Female

DRUGS (9)
  1. MORPHINE [Suspect]
     Active Substance: MORPHINE
  2. DULOXETINE HYDROCHLORIDE. [Suspect]
     Active Substance: DULOXETINE HYDROCHLORIDE
  3. METHADONE [Suspect]
     Active Substance: METHADONE HYDROCHLORIDE
  4. AMPHOTERICIN [Concomitant]
     Active Substance: AMPHOTERICIN B
  5. AMITRIPTYLINE [Suspect]
     Active Substance: AMITRIPTYLINE
  6. GABAPENTIN. [Suspect]
     Active Substance: GABAPENTIN
  7. LORAZEPAM. [Suspect]
     Active Substance: LORAZEPAM
  8. LIDOCAINE. [Suspect]
     Active Substance: LIDOCAINE
  9. KETAMINE [Suspect]
     Active Substance: KETAMINE

REACTIONS (1)
  - Therapeutic response decreased [Unknown]
